FAERS Safety Report 12963267 (Version 1)
Quarter: 2016Q4

REPORT INFORMATION
  Report Type: Spontaneous
  Country: US (occurrence: US)
  Receive Date: 20161122
  Receipt Date: 20161122
  Transmission Date: 20170207
  Serious: Yes (Other)
  Sender: FDA-Public Use
  Company Number: US-BAUSCH-BL-2016-028351

PATIENT
  Age: 27 Year
  Sex: Male

DRUGS (7)
  1. DEXAMETHASONE PHOSPHATE [Concomitant]
     Active Substance: DEXAMETHASONE PHOSPHATE
     Route: 031
  2. GENTAMICIN. [Suspect]
     Active Substance: GENTAMICIN
     Indication: STAPHYLOCOCCAL INFECTION
     Route: 042
  3. CEFAZOLIN [Concomitant]
     Active Substance: CEFAZOLIN
     Route: 042
  4. GENTAMICIN. [Suspect]
     Active Substance: GENTAMICIN
     Route: 047
  5. GENTAMICIN SULFATE. [Suspect]
     Active Substance: GENTAMICIN SULFATE
     Route: 031
  6. CEFAZOLIN [Concomitant]
     Active Substance: CEFAZOLIN
     Indication: STAPHYLOCOCCAL INFECTION
     Route: 031
  7. CEFAZOLIN [Concomitant]
     Active Substance: CEFAZOLIN
     Route: 047

REACTIONS (7)
  - Retinal detachment [Unknown]
  - Capillary disorder [Unknown]
  - Macular oedema [Recovering/Resolving]
  - Visual acuity tests abnormal [Unknown]
  - Toxicity to various agents [Unknown]
  - Maculopathy [Unknown]
  - Retinal haemorrhage [Recovering/Resolving]
